FAERS Safety Report 6902190-5 (Version None)
Quarter: 2010Q3

REPORT INFORMATION
  Report Type: 
  Country: None (occurrence: None)
  Receive Date: 20100803
  Receipt Date: 20080501
  Transmission Date: 20110219
  Serious: No
  Sender: FDA-Public Use
  Company Number: US-PFIZER INC-2008007562

PATIENT
  Sex: Female
  Weight: 67.7 kg

DRUGS (5)
  1. LYRICA [Suspect]
     Indication: NEURALGIA
     Route: 048
     Dates: start: 20080108
  2. LYRICA [Suspect]
     Indication: BONE PAIN
  3. LIPITOR [Concomitant]
  4. FOSAMAX [Concomitant]
  5. VITAMIN D [Concomitant]

REACTIONS (1)
  - WEIGHT INCREASED [None]
